FAERS Safety Report 16701520 (Version 2)
Quarter: 2019Q4

REPORT INFORMATION
  Report Type: Spontaneous
  Country: DE (occurrence: DE)
  Receive Date: 20190814
  Receipt Date: 20191010
  Transmission Date: 20200122
  Serious: Yes (Other)
  Sender: FDA-Public Use
  Company Number: DE-TORRENT-00015153

PATIENT
  Age: 30 Year
  Sex: Male
  Weight: 75 kg

DRUGS (1)
  1. LEVOFLOXACIN. [Suspect]
     Active Substance: LEVOFLOXACIN
     Indication: PRODUCT USED FOR UNKNOWN INDICATION
     Dates: start: 201901

REACTIONS (25)
  - Panic attack [Unknown]
  - Hospitalisation [Unknown]
  - Depression [Unknown]
  - Blood urine present [Unknown]
  - Eye inflammation [Unknown]
  - Eye pain [Unknown]
  - Restlessness [Unknown]
  - Arthralgia [Unknown]
  - Impaired work ability [Unknown]
  - Disorientation [Unknown]
  - Memory impairment [Unknown]
  - Palpitations [Unknown]
  - Movement disorder [Unknown]
  - Weight decreased [Unknown]
  - Mobility decreased [Unknown]
  - Haematochezia [Unknown]
  - Muscle twitching [Unknown]
  - Headache [Unknown]
  - Pain in extremity [Unknown]
  - Seizure [Unknown]
  - Alopecia [Unknown]
  - Sleep disorder [Unknown]
  - Hypoaesthesia [Unknown]
  - Urinary tract discomfort [Unknown]
  - Mental disorder [Unknown]

NARRATIVE: CASE EVENT DATE: 2019
